FAERS Safety Report 23298828 (Version 1)
Quarter: 2023Q4

REPORT INFORMATION
  Report Type: Spontaneous
  Country: CN (occurrence: CN)
  Receive Date: 20231215
  Receipt Date: 20231215
  Transmission Date: 20240110
  Serious: Yes (Hospitalization)
  Sender: FDA-Public Use
  Company Number: CN-Merck Healthcare KGaA-2023493012

PATIENT
  Age: 85 Year
  Sex: Female
  Weight: 59 kg

DRUGS (12)
  1. ERBITUX [Suspect]
     Active Substance: CETUXIMAB
     Indication: Colon cancer
     Dosage: 300 MG, UNKNOWN
     Route: 041
     Dates: start: 20231102, end: 20231102
  2. ERBITUX [Suspect]
     Active Substance: CETUXIMAB
     Dosage: 300 MG, UNKNOWN
     Route: 041
     Dates: start: 20231108, end: 20231108
  3. OXALIPLATIN [Suspect]
     Active Substance: OXALIPLATIN
     Indication: Colon cancer
     Dosage: 100 MG, DAILY
     Route: 041
     Dates: start: 20231102, end: 20231102
  4. LEUCOVORIN CALCIUM [Suspect]
     Active Substance: LEUCOVORIN CALCIUM
     Indication: Colon cancer
     Dosage: 250 MG, DAILY
     Route: 041
     Dates: start: 20231102, end: 20231103
  5. FLUOROURACIL [Suspect]
     Active Substance: FLUOROURACIL
     Indication: Colon cancer
     Dosage: 0.25 G, DAILY
     Route: 041
     Dates: start: 20231102, end: 20231103
  6. FLUOROURACIL [Suspect]
     Active Substance: FLUOROURACIL
     Dosage: 0.75 G, DAILY
     Route: 041
     Dates: start: 20231102, end: 20231103
  7. SODIUM CHLORIDE [Concomitant]
     Active Substance: SODIUM CHLORIDE
     Indication: Medication dilution
     Dosage: 20 ML, DAILY
     Route: 041
     Dates: start: 20231102, end: 20231103
  8. SODIUM CHLORIDE [Concomitant]
     Active Substance: SODIUM CHLORIDE
     Dosage: 240 ML, DAILY
     Route: 041
     Dates: start: 20231102, end: 20231103
  9. SODIUM CHLORIDE [Concomitant]
     Active Substance: SODIUM CHLORIDE
     Dosage: 200 ML, DAILY
     Route: 041
     Dates: start: 20231102, end: 20231102
  10. SODIUM CHLORIDE [Concomitant]
     Active Substance: SODIUM CHLORIDE
     Dosage: 200 ML, DAILY
     Route: 041
     Dates: start: 20231108, end: 20231108
  11. DEXTROSE [Concomitant]
     Active Substance: DEXTROSE\DEXTROSE MONOHYDRATE
     Indication: Medication dilution
     Dosage: 500 ML, DAILY
     Route: 041
     Dates: start: 20231102, end: 20231102
  12. DEXTROSE [Concomitant]
     Active Substance: DEXTROSE\DEXTROSE MONOHYDRATE
     Dosage: 250 ML, DAILY
     Route: 041
     Dates: start: 20231102, end: 20231103

REACTIONS (2)
  - Neutrophil count decreased [Recovered/Resolved]
  - White blood cell count decreased [Recovered/Resolved]

NARRATIVE: CASE EVENT DATE: 20231122
